FAERS Safety Report 4747450-1 (Version None)
Quarter: 2005Q3

REPORT INFORMATION
  Report Type: 
  Country: None (occurrence: None)
  Receive Date: 20050815
  Receipt Date: 20050427
  Transmission Date: 20060218
  Serious: No
  Sender: FDA-Public Use
  Company Number: USA050496734

PATIENT
  Age: 61 Year
  Sex: Male

DRUGS (7)
  1. CIALIS [Suspect]
     Indication: ERECTILE DYSFUNCTION
     Dosage: 20 MG
     Dates: start: 20040401
  2. LANTUS [Concomitant]
  3. METFORMIN HCL [Concomitant]
  4. GLYBURIDE [Concomitant]
  5. ATACAND [Concomitant]
  6. ACTOS ^TAKEDA^ (PIOGILTAZONE) [Concomitant]
  7. CRESTOR [Concomitant]

REACTIONS (1)
  - DYSPEPSIA [None]
